FAERS Safety Report 7457312-7 (Version None)
Quarter: 2011Q1

REPORT INFORMATION
  Report Type: 
  Country: None (occurrence: None)
  Receive Date: 20110302
  Receipt Date: 20101222
  Transmission Date: 20110831
  Serious: No
  Sender: FDA-Public Use
  Company Number: 021581

PATIENT
  Sex: Male
  Weight: 73 kg

DRUGS (9)
  1. FERROUS SULFATE TAB [Concomitant]
  2. CIMZIA [Suspect]
     Indication: CROHN'S DISEASE
     Dosage: (200 MG 1X/2 WEEKS SUBCUTANEOUS)
     Route: 058
     Dates: start: 20101031
  3. CIMZIA [Suspect]
     Indication: CROHN'S DISEASE
     Dosage: (200 MG 1X/2 WEEKS SUBCUTANEOUS)
     Route: 058
     Dates: start: 20100715, end: 20101028
  4. METHOTREXATE [Concomitant]
  5. ZINC [Concomitant]
  6. VITAMIN B12 /00056201/ [Concomitant]
  7. M.V.I. [Concomitant]
  8. FOLIC ACID [Concomitant]
  9. RED BLOOD CELLS [Concomitant]

REACTIONS (7)
  - DRUG INEFFECTIVE [None]
  - INJECTION SITE PAIN [None]
  - ANAEMIA [None]
  - WEIGHT GAIN POOR [None]
  - FREQUENT BOWEL MOVEMENTS [None]
  - FATIGUE [None]
  - BODY TEMPERATURE INCREASED [None]
